FAERS Safety Report 10406845 (Version 1)
Quarter: 2014Q3

REPORT INFORMATION
  Report Type: Spontaneous
  Country: US (occurrence: US)
  Receive Date: 20140825
  Receipt Date: 20140825
  Transmission Date: 20150326
  Serious: No
  Sender: FDA-Public Use
  Company Number: US-PFIZER INC-2014234684

PATIENT
  Age: 82 Year
  Sex: Male
  Weight: 104.31 kg

DRUGS (3)
  1. LYRICA [Suspect]
     Active Substance: PREGABALIN
     Indication: BALANCE DISORDER
  2. LYRICA [Suspect]
     Active Substance: PREGABALIN
     Indication: TINNITUS
  3. LYRICA [Suspect]
     Active Substance: PREGABALIN
     Indication: PARAESTHESIA
     Dosage: 150 MG, 2X/DAY
     Route: 048
     Dates: start: 201408

REACTIONS (6)
  - Tinnitus [Unknown]
  - Balance disorder [Unknown]
  - Hypersomnia [Unknown]
  - Disease progression [Unknown]
  - Off label use [Unknown]
  - Paraesthesia [Unknown]

NARRATIVE: CASE EVENT DATE: 201408
